FAERS Safety Report 20625315 (Version 1)
Quarter: 2022Q1

REPORT INFORMATION
  Report Type: Spontaneous
  Country: US (occurrence: US)
  Receive Date: 20220323
  Receipt Date: 20220323
  Transmission Date: 20220423
  Serious: No
  Sender: FDA-Public Use
  Company Number: US-SAGENT PHARMACEUTICALS-2022SAG000394

PATIENT

DRUGS (4)
  1. FULVESTRANT [Suspect]
     Active Substance: FULVESTRANT
     Indication: Breast cancer metastatic
     Dosage: 500 UNK, QMONTH, INJECTION, ONE ON EACH SIDE
     Route: 051
     Dates: start: 202109
  2. IBRANCE [Suspect]
     Active Substance: PALBOCICLIB
     Indication: Product used for unknown indication
     Dosage: 125 MG, QD
     Dates: start: 202109
  3. ADVIL                              /00044201/ [Concomitant]
     Indication: Pain
     Dosage: 200 MG, UNK
  4. PROLIA [Concomitant]
     Active Substance: DENOSUMAB
     Indication: Osteopetrosis
     Dosage: INJECTION IN THE ARM, TWICE A YEAR

REACTIONS (7)
  - Increased appetite [Unknown]
  - Weight increased [Unknown]
  - Condition aggravated [Unknown]
  - Body height decreased [Unknown]
  - White blood cell count decreased [Unknown]
  - Cough [Unknown]
  - Fatigue [Unknown]
